FAERS Safety Report 6008529-X (Version None)
Quarter: 2008Q4

REPORT INFORMATION
  Report Type: 
  Country: None (occurrence: None)
  Receive Date: 20081217
  Receipt Date: 20081215
  Transmission Date: 20090506
  Serious: Yes (Hospitalization)
  Sender: FDA-Public Use
  Company Number: NZ-WATSON-2008-07348

PATIENT
  Sex: Female

DRUGS (2)
  1. TRELSTAR MIXJECT UNKNOWN STRENGTH (WATSON LABORATORIES) [Suspect]
     Indication: BREAST CANCER FEMALE
     Dosage: UNK
     Route: 065
     Dates: start: 20070209
  2. TAMOXIFEN [Suspect]
     Indication: BREAST CANCER FEMALE
     Dosage: 20 MG, UNKNOWN
     Route: 048
     Dates: start: 20070208

REACTIONS (1)
  - WRIST FRACTURE [None]
